FAERS Safety Report 20247644 (Version 2)
Quarter: 2022Q1

REPORT INFORMATION
  Report Type: Report from Study
  Country: US (occurrence: US)
  Receive Date: 20211229
  Receipt Date: 20220330
  Transmission Date: 20220424
  Serious: No
  Sender: FDA-Public Use
  Company Number: US-SA-SAC20211227000775

PATIENT
  Age: 71 Year
  Sex: Female

DRUGS (15)
  1. DUPIXENT [Suspect]
     Active Substance: DUPILUMAB
     Indication: Nasal polyps
     Dosage: 300 MG, QOW
     Route: 058
     Dates: start: 202112
  2. DUPIXENT [Suspect]
     Active Substance: DUPILUMAB
     Indication: Asthma
  3. FLONASE ALLERGY RELIEF [Concomitant]
     Active Substance: FLUTICASONE PROPIONATE
  4. FOLIC ACID [Concomitant]
     Active Substance: FOLIC ACID
  5. LEVOCABASTINE HYDROCHLORIDE [Concomitant]
     Active Substance: LEVOCABASTINE HYDROCHLORIDE
  6. LEVOFLOXACIN [Concomitant]
     Active Substance: LEVOFLOXACIN
  7. MONTELUKAST SODIUM [Concomitant]
     Active Substance: MONTELUKAST SODIUM
  8. BUDESONIDE [Concomitant]
     Active Substance: BUDESONIDE
  9. AMOXICILLIN\CLAVULANIC ACID [Concomitant]
     Active Substance: AMOXICILLIN\CLAVULANIC ACID
  10. DESONIDE [Concomitant]
     Active Substance: DESONIDE
  11. METRONIDAZOLE [Concomitant]
     Active Substance: METRONIDAZOLE
  12. TRETINOIN [Concomitant]
     Active Substance: TRETINOIN
  13. PREDNISONE [Concomitant]
     Active Substance: PREDNISONE
  14. DOXYCYCLINE HYCLATE [Concomitant]
     Active Substance: DOXYCYCLINE HYCLATE
  15. FLUOCINONIDE [Concomitant]
     Active Substance: FLUOCINONIDE

REACTIONS (8)
  - Anosmia [Unknown]
  - Sinus disorder [Unknown]
  - Ear discomfort [Unknown]
  - Discomfort [Unknown]
  - Insomnia [Unknown]
  - Dyspnoea [Unknown]
  - Product use in unapproved indication [Unknown]
  - Product dose omission issue [Unknown]

NARRATIVE: CASE EVENT DATE: 20211201
